FAERS Safety Report 10286584 (Version 2)
Quarter: 2014Q3

REPORT INFORMATION
  Report Type: Spontaneous
  Country: FI (occurrence: FI)
  Receive Date: 20140709
  Receipt Date: 20140821
  Transmission Date: 20150326
  Serious: Yes (Hospitalization)
  Sender: FDA-Public Use
  Company Number: PHHY2014FI083511

PATIENT
  Age: 29 Year
  Sex: Female

DRUGS (8)
  1. SEPRAM [Concomitant]
     Active Substance: CITALOPRAM HYDROBROMIDE
     Indication: OBSESSIVE-COMPULSIVE DISORDER
     Dosage: UNK
  2. LEPONEX [Suspect]
     Active Substance: CLOZAPINE
     Dosage: 25 MG (DOSE REDUCED)
     Dates: start: 2013, end: 20131202
  3. KETIPINOR [Concomitant]
     Indication: INITIAL INSOMNIA
     Dosage: UNK UKN, UNK
  4. LEPONEX [Suspect]
     Active Substance: CLOZAPINE
     Indication: OBSESSIVE-COMPULSIVE DISORDER
     Dosage: 400 MG, UNK
     Dates: start: 2009, end: 201212
  5. LEPONEX [Suspect]
     Active Substance: CLOZAPINE
     Indication: OFF LABEL USE
     Dosage: UNK UKN, UNK
     Dates: start: 201212, end: 2013
  6. MELATONIN [Concomitant]
     Active Substance: MELATONIN
     Indication: INSOMNIA
     Dosage: UNK
  7. IMOVANE [Concomitant]
     Active Substance: ZOPICLONE
     Indication: INSOMNIA
     Dosage: UNK
  8. CERAZETTE [Concomitant]
     Active Substance: DESOGESTREL
     Indication: CONTRACEPTION
     Dosage: UNK

REACTIONS (3)
  - Incoherent [Recovered/Resolved]
  - Insomnia [Not Recovered/Not Resolved]
  - Off label use [Unknown]

NARRATIVE: CASE EVENT DATE: 20131203
